FAERS Safety Report 18247685 (Version 1)
Quarter: 2020Q3

REPORT INFORMATION
  Report Type: Spontaneous
  Country: US (occurrence: US)
  Receive Date: 20200909
  Receipt Date: 20200909
  Transmission Date: 20201103
  Serious: No
  Sender: FDA-Public Use
  Company Number: US-PFIZER INC-2020345468

PATIENT
  Age: 54 Year
  Sex: Male

DRUGS (6)
  1. OTEZLA [Suspect]
     Active Substance: APREMILAST
     Dosage: (60 MG) 30 MG 2X/DAY
     Route: 048
     Dates: start: 202002
  2. CELEBREX [Suspect]
     Active Substance: CELECOXIB
     Dosage: UNK
     Route: 048
  3. CELEBREX [Suspect]
     Active Substance: CELECOXIB
     Dosage: UNK
     Route: 048
     Dates: start: 2020
  4. OTEZLA [Suspect]
     Active Substance: APREMILAST
     Dosage: TITRATION PACK (DAY 3: 10MG AM 20MG PM, DAY 4: 20MG AM/PM, DAY 5: 20MG AM 30MG PM )
     Route: 048
     Dates: start: 20200221
  5. OTEZLA [Suspect]
     Active Substance: APREMILAST
     Indication: PSORIASIS
     Dosage: TITRATION PACK  (DAY 1: 10 MG AM, DAY 2: 10 MG AM/PM)
     Route: 048
     Dates: start: 20200221
  6. OTEZLA [Suspect]
     Active Substance: APREMILAST
     Dosage: (30 MG) 30 MG 1X/DAY
     Route: 048
     Dates: start: 2020

REACTIONS (1)
  - Pruritus [Recovered/Resolved]

NARRATIVE: CASE EVENT DATE: 202003
